FAERS Safety Report 23885615 (Version 2)
Quarter: 2024Q3

REPORT INFORMATION
  Report Type: Spontaneous
  Country: JP (occurrence: JP)
  Receive Date: 20240522
  Receipt Date: 20240729
  Transmission Date: 20241016
  Serious: Yes (Hospitalization)
  Sender: OTSUKA
  Company Number: JP-OTSUKA-2024_014160

PATIENT

DRUGS (1)
  1. REXULTI [Suspect]
     Active Substance: BREXPIPRAZOLE
     Indication: Sedation
     Dosage: UNK
     Route: 048

REACTIONS (2)
  - Bronchitis [Recovered/Resolved]
  - Product use in unapproved indication [Unknown]
